FAERS Safety Report 14800878 (Version 2)
Quarter: 2018Q2

REPORT INFORMATION
  Report Type: Spontaneous
  Country: JP (occurrence: JP)
  Receive Date: 20180424
  Receipt Date: 20180615
  Transmission Date: 20180711
  Serious: Yes (Hospitalization)
  Sender: FDA-Public Use
  Company Number: JP-009507513-1803JPN000393J

PATIENT
  Sex: Female

DRUGS (4)
  1. MARVELON [Suspect]
     Active Substance: DESOGESTREL\ETHINYL ESTRADIOL
     Dosage: 1 DF, BID
     Route: 048
     Dates: start: 20180305, end: 20180305
  2. MARVELON [Suspect]
     Active Substance: DESOGESTREL\ETHINYL ESTRADIOL
     Dosage: UNK
     Route: 048
     Dates: start: 20180306, end: 20180610
  3. MARVELON [Suspect]
     Active Substance: DESOGESTREL\ETHINYL ESTRADIOL
     Indication: CONTRACEPTION
     Dosage: UNK
     Route: 048
     Dates: end: 20180303
  4. MARVELON [Suspect]
     Active Substance: DESOGESTREL\ETHINYL ESTRADIOL
     Dosage: 1 DF, BID
     Route: 048
     Dates: start: 20180611, end: 20180611

REACTIONS (9)
  - Inappropriate schedule of drug administration [Unknown]
  - Inappropriate schedule of drug administration [Unknown]
  - Vomiting [Unknown]
  - Vomiting [Unknown]
  - Adverse event [Unknown]
  - Overdose [Unknown]
  - Asthenia [Unknown]
  - Inappropriate schedule of drug administration [Unknown]
  - Nausea [Unknown]

NARRATIVE: CASE EVENT DATE: 20180304
